FAERS Safety Report 4798153-9 (Version None)
Quarter: 2005Q4

REPORT INFORMATION
  Report Type: 
  Country: None (occurrence: None)
  Receive Date: 20051011
  Receipt Date: 20050929
  Transmission Date: 20060501
  Serious: Yes (Other)
  Sender: FDA-Public Use
  Company Number: 2005129789

PATIENT
  Age: 14 Year
  Sex: Male

DRUGS (5)
  1. SOLU-MEDROL [Suspect]
     Indication: GRAFT VERSUS HOST DISEASE
  2. PREDNISONE [Suspect]
     Indication: GRAFT VERSUS HOST DISEASE
  3. METHOTREXATE [Suspect]
     Indication: GRAFT VERSUS HOST DISEASE
  4. MYCOPHENOLATE MOFETIL (MYCOPHENOLATE MOFETIL) [Suspect]
     Indication: GRAFT VERSUS HOST DISEASE
     Dosage: ORAL
     Route: 048
  5. CYCLOSPORINE [Suspect]
     Indication: GRAFT VERSUS HOST DISEASE

REACTIONS (2)
  - ABDOMINAL PAIN UPPER [None]
  - PNEUMATOSIS INTESTINALIS [None]
